FAERS Safety Report 11144438 (Version 10)
Quarter: 2016Q3

REPORT INFORMATION
  Report Type: Spontaneous
  Country: US (occurrence: US)
  Receive Date: 20150526
  Receipt Date: 20160916
  Transmission Date: 20161109
  Serious: Yes (Other)
  Sender: FDA-Public Use
  Company Number: US-PFIZER INC-2015171612

PATIENT
  Age: 69 Year
  Sex: Female
  Weight: 77 kg

DRUGS (23)
  1. AROMASIN [Suspect]
     Active Substance: EXEMESTANE
     Dosage: 25 MG, DAILY
     Route: 048
     Dates: start: 20160209
  2. VITAMIN D3 [Concomitant]
     Active Substance: CHOLECALCIFEROL
     Indication: HYPOVITAMINOSIS
     Dosage: 5000 IU, 1X/DAY
     Dates: start: 201401
  3. VITAMIN E [Concomitant]
     Active Substance: .ALPHA.-TOCOPHEROL
     Indication: VITAMIN E DEFICIENCY
     Dosage: 400, 2X/DAY
  4. AROMASIN [Suspect]
     Active Substance: EXEMESTANE
     Dosage: UNK
     Dates: start: 201412
  5. VITAMIN E [Concomitant]
     Active Substance: .ALPHA.-TOCOPHEROL
     Dosage: 1000 IU, 1X/DAY
     Dates: start: 2014
  6. VITAMIN D [Concomitant]
     Active Substance: CHOLECALCIFEROL
     Dosage: UNK
     Dates: start: 2015
  7. LYSINE [Concomitant]
     Active Substance: LYSINE
     Indication: ORAL HERPES
     Dosage: UNK, (ONCE IN A WHILE)
     Dates: start: 2012
  8. AROMASIN [Suspect]
     Active Substance: EXEMESTANE
     Indication: BREAST CANCER FEMALE
     Dosage: 25 MG, 1X/DAY
     Route: 048
     Dates: start: 201411
  9. AROMASIN [Suspect]
     Active Substance: EXEMESTANE
     Indication: HORMONE LEVEL ABNORMAL
     Dosage: 25 MG, 1X/DAY
     Route: 048
  10. ALPRAZOLAM. [Concomitant]
     Active Substance: ALPRAZOLAM
     Dosage: UNK
  11. CORAL CALCIUM SUPREME [Concomitant]
     Indication: OSTEOPOROSIS
     Dosage: 400 MG, DAILY
     Dates: start: 2010
  12. VITAMIN D3 [Concomitant]
     Active Substance: CHOLECALCIFEROL
     Dosage: 2 DF, TWO PILLS TO BE 800
  13. SIMVASTATIN. [Concomitant]
     Active Substance: SIMVASTATIN
     Dosage: 20 MG, 1X/DAY
     Dates: start: 2014
  14. AROMASIN [Suspect]
     Active Substance: EXEMESTANE
     Dosage: 25 MG, 1X/DAY
     Route: 048
     Dates: start: 201501, end: 201511
  15. ACETAMINOPHEN AND DIPHENHYDRAMINE HYDROCHLORIDE [Concomitant]
     Active Substance: ACETAMINOPHEN\DIPHENHYDRAMINE HYDROCHLORIDE
     Indication: INSOMNIA
     Dosage: ACETAMINOPHEN 500/DIPHENHYDRAMINE 25 DAILY , DAILY
  16. SYNTHROID [Concomitant]
     Active Substance: LEVOTHYROXINE SODIUM
     Dosage: 75 UG, 1X/DAY
     Dates: start: 2008
  17. CALCIUM [Concomitant]
     Active Substance: CALCIUM
     Dosage: 1200 MG, 2X/DAY
     Dates: start: 2014
  18. VITAMIN B12 [Concomitant]
     Active Substance: CYANOCOBALAMIN
     Indication: ASTHENIA
     Dosage: 1000 UG, 1X/DAY
     Dates: start: 2015
  19. INSTAFLEX [Concomitant]
     Active Substance: DIETARY SUPPLEMENT
     Indication: ARTHROPATHY
     Dosage: UNK
     Dates: start: 2016
  20. BUPROPION HCL [Concomitant]
     Active Substance: BUPROPION HYDROCHLORIDE
     Dosage: UNK
     Dates: start: 2016
  21. IBUPROFEN. [Concomitant]
     Active Substance: IBUPROFEN
     Dosage: AS NEEDED
     Dates: start: 2016
  22. XANAX [Concomitant]
     Active Substance: ALPRAZOLAM
     Indication: SLEEP DISORDER
     Dosage: 0.25 MG, 1X/DAY AT NIGHT
     Dates: start: 2010
  23. COQ10 [Concomitant]
     Active Substance: UBIDECARENONE
     Dosage: 100 MG, 1X/DAY
     Dates: start: 2015

REACTIONS (14)
  - Bronchitis [Recovered/Resolved]
  - Fall [Unknown]
  - Sleep disorder [Recovered/Resolved]
  - Chest pain [Recovered/Resolved]
  - Musculoskeletal pain [Unknown]
  - Dyspnoea [Not Recovered/Not Resolved]
  - Upper limb fracture [Unknown]
  - Pain in extremity [Not Recovered/Not Resolved]
  - Chest discomfort [Recovered/Resolved]
  - Back pain [Not Recovered/Not Resolved]
  - Pain [Recovered/Resolved]
  - Fatigue [Not Recovered/Not Resolved]
  - Musculoskeletal discomfort [Not Recovered/Not Resolved]
  - Cough [Recovered/Resolved]

NARRATIVE: CASE EVENT DATE: 201502
